FAERS Safety Report 22642248 (Version 1)
Quarter: 2023Q2

REPORT INFORMATION
  Report Type: Spontaneous
  Country: CH (occurrence: CH)
  Receive Date: 20230626
  Receipt Date: 20230626
  Transmission Date: 20230721
  Serious: Yes (Hospitalization, Disabling)
  Sender: FDA-Public Use
  Company Number: None

PATIENT
  Age: 66 Year
  Sex: Male
  Weight: 68 kg

DRUGS (4)
  1. CIPROFLOXACIN [Suspect]
     Active Substance: CIPROFLOXACIN
     Indication: Diverticulitis
     Dosage: 1000 MILLIGRAM DAILY; EVERY 12 HOURS ONE TABLET
     Route: 048
     Dates: start: 20230304, end: 20230310
  2. METRONIDAZOLE [Suspect]
     Active Substance: METRONIDAZOLE
     Indication: Diverticulitis
     Dosage: 1500 MILLIGRAM DAILY; 3 X 500 MG PER DAY
     Route: 048
     Dates: start: 20230304, end: 20230310
  3. ENALAPRIL MALEATE\HYDROCHLOROTHIAZIDE [Concomitant]
     Active Substance: ENALAPRIL MALEATE\HYDROCHLOROTHIAZIDE
     Indication: Hypertension
     Dosage: 1 DOSAGE FORMS DAILY; 20/12.5 MG ONCE DAILY (IN THE MORNING). START- AND ENDDATE NOT KNOWN
     Route: 048
  4. RAMIPRIL [Concomitant]
     Active Substance: RAMIPRIL
     Indication: Hypertension
     Dosage: 5 MILLIGRAM DAILY; ONE TABLET  IN THE EVENING PER DAY
     Route: 048

REACTIONS (3)
  - Pain in extremity [Recovering/Resolving]
  - Walking disability [Not Recovered/Not Resolved]
  - Intervertebral disc protrusion [Recovering/Resolving]

NARRATIVE: CASE EVENT DATE: 20230304
